FAERS Safety Report 17850022 (Version 3)
Quarter: 2020Q2

REPORT INFORMATION
  Report Type: Spontaneous
  Country: TH (occurrence: TH)
  Receive Date: 20200602
  Receipt Date: 20200610
  Transmission Date: 20200714
  Serious: Yes (Hospitalization)
  Sender: FDA-Public Use
  Company Number: TH-ROCHE-2612870

PATIENT

DRUGS (1)
  1. KADCYLA [Suspect]
     Active Substance: ADO-TRASTUZUMAB EMTANSINE
     Indication: BREAST CANCER METASTATIC
     Dosage: 1 DOSE OF TRASTUZUMAB EMTANSINE AS LATER LINE
     Route: 065

REACTIONS (2)
  - Cerebrovascular accident [Unknown]
  - Platelet count decreased [Unknown]
